FAERS Safety Report 4777951-1 (Version None)
Quarter: 2005Q3

REPORT INFORMATION
  Report Type: 
  Country: None (occurrence: None)
  Receive Date: 20050921
  Receipt Date: 20050909
  Transmission Date: 20060218
  Serious: Yes (Hospitalization, Other)
  Sender: FDA-Public Use
  Company Number: 2005JP001077

PATIENT
  Age: 51 Year
  Sex: Female
  Weight: 42 kg

DRUGS (12)
  1. PROGRAF [Suspect]
     Indication: RHEUMATOID ARTHRITIS
     Dosage: SEE IMAGE, ORAL
     Route: 048
     Dates: start: 20050513, end: 20050522
  2. PROGRAF [Suspect]
     Indication: RHEUMATOID ARTHRITIS
     Dosage: SEE IMAGE, ORAL
     Route: 048
     Dates: start: 20050523, end: 20050527
  3. PROGRAF [Suspect]
     Indication: RHEUMATOID ARTHRITIS
     Dosage: SEE IMAGE, ORAL
     Route: 048
     Dates: start: 20050606, end: 20050606
  4. PROGRAF [Suspect]
     Indication: RHEUMATOID ARTHRITIS
     Dosage: SEE IMAGE, ORAL
     Route: 048
     Dates: start: 20050607, end: 20050614
  5. PREDNISOLONE [Suspect]
     Indication: RHEUMATOID ARTHRITIS
     Dosage: 40.00 MG, D, ORAL
     Route: 048
     Dates: start: 20050412, end: 20050615
  6. NEORAL CAPSULE [Concomitant]
  7. BAKTAR SULFAMETHOXAZOLE, TRIMETHOPRIM) POWDER [Concomitant]
  8. KLARICID (CLARITHROMYCIN) TABLET [Concomitant]
  9. TAKEPRON (LANSOPRAZOLE) TABLET [Concomitant]
  10. METHYLCOBAL (MECOBALAMIN) TABLET [Concomitant]
  11. RESPLEN (EPRAZINONE HYDROCHLORIDE) TABLET [Concomitant]
  12. OSTELUC (ETODOLAC) TABLET [Concomitant]

REACTIONS (5)
  - BLOOD GLUCOSE INCREASED [None]
  - BLOOD LACTATE DEHYDROGENASE INCREASED [None]
  - HOT FLUSH [None]
  - INSOMNIA [None]
  - LOSS OF CONSCIOUSNESS [None]
